FAERS Safety Report 14856360 (Version 1)
Quarter: 2018Q2

REPORT INFORMATION
  Report Type: Spontaneous
  Country: US (occurrence: US)
  Receive Date: 20180507
  Receipt Date: 20180507
  Transmission Date: 20180711
  Serious: No
  Sender: FDA-Public Use
  Company Number: US-ROCHE-2034896

PATIENT
  Sex: Female

DRUGS (6)
  1. DEXTROSE. [Concomitant]
     Active Substance: DEXTROSE
  2. ALBUTEROL SULFATE. [Concomitant]
     Active Substance: ALBUTEROL SULFATE
  3. DIOVAN [Concomitant]
     Active Substance: VALSARTAN
  4. ESBRIET [Suspect]
     Active Substance: PIRFENIDONE
     Indication: INTERSTITIAL LUNG DISEASE
     Route: 048
     Dates: start: 20171115
  5. ESTRACE (UNITED STATES) [Concomitant]
  6. DILAUDID [Concomitant]
     Active Substance: HYDROMORPHONE HYDROCHLORIDE

REACTIONS (2)
  - Tremor [Unknown]
  - Dyspepsia [Recovering/Resolving]
